FAERS Safety Report 8158878-4 (Version None)
Quarter: 2012Q1

REPORT INFORMATION
  Report Type: 
  Country: None (occurrence: None)
  Receive Date: 20120223
  Receipt Date: 20120221
  Transmission Date: 20120608
  Serious: Yes (Other)
  Sender: FDA-Public Use
  Company Number: US-PFIZER INC-2012046034

PATIENT
  Sex: Female
  Weight: 49.887 kg

DRUGS (3)
  1. CHANTIX [Suspect]
     Indication: SMOKING CESSATION THERAPY
     Dosage: 0.5 MG, 1X/DAY
     Route: 048
  2. LOSARTAN [Concomitant]
     Indication: HYPERTENSION
     Dosage: 25 MG, UNK
  3. CHANTIX [Suspect]
     Dosage: 0.5 MG, 1X/DAY
     Route: 048
     Dates: start: 20120220

REACTIONS (2)
  - HYPERTENSION [None]
  - HEADACHE [None]
